FAERS Safety Report 17264374 (Version 2)
Quarter: 2020Q1

REPORT INFORMATION
  Report Type: Spontaneous
  Country: US (occurrence: US)
  Receive Date: 20200113
  Receipt Date: 20200304
  Transmission Date: 20200409
  Serious: No
  Sender: FDA-Public Use
  Company Number: NVSC2020US006156

PATIENT

DRUGS (1)
  1. ROCURONIUM BROMIDE. [Suspect]
     Active Substance: ROCURONIUM BROMIDE
     Indication: PRODUCT USED FOR UNKNOWN INDICATION
     Dosage: UNK
     Route: 065

REACTIONS (1)
  - Drug ineffective [Unknown]
